FAERS Safety Report 6572784-8 (Version None)
Quarter: 2010Q1

REPORT INFORMATION
  Report Type: 
  Country: None (occurrence: None)
  Receive Date: 20100205
  Receipt Date: 20100126
  Transmission Date: 20100710
  Serious: Yes (Hospitalization, Other)
  Sender: FDA-Public Use
  Company Number: FR-ABBOTT-10P-056-0622445-00

PATIENT
  Sex: Female

DRUGS (11)
  1. ZECLAR [Suspect]
     Indication: TUBERCULOSIS
     Route: 048
     Dates: start: 20080515
  2. ADIAZINE [Suspect]
     Indication: TOXOPLASMOSIS
     Route: 048
     Dates: start: 20080509, end: 20080519
  3. MALOCIDE [Suspect]
     Indication: TOXOPLASMOSIS
     Dosage: 2 DOSAGE FORM DAILY
     Route: 048
     Dates: start: 20080509, end: 20080521
  4. TRIFLUCAN [Suspect]
     Indication: TOXOPLASMOSIS
     Route: 048
     Dates: start: 20080509, end: 20080519
  5. RIFADIN [Suspect]
     Indication: TUBERCULOSIS
     Route: 042
     Dates: start: 20080515, end: 20080519
  6. RIMIFON [Suspect]
     Indication: TUBERCULOSIS
     Route: 042
     Dates: start: 20080515, end: 20080519
  7. PIRILENE [Suspect]
     Indication: TUBERCULOSIS
     Route: 048
     Dates: start: 20080515, end: 20080519
  8. MYAMBUTOL [Suspect]
     Indication: TUBERCULOSIS
     Dosage: 750 MG PER DAY THEN 550MG PER DAY
     Route: 042
     Dates: start: 20080515
  9. LEDERFOLINE [Concomitant]
     Indication: DRUG USE FOR UNKNOWN INDICATION
     Dates: start: 20080505
  10. KALETRA [Concomitant]
     Indication: HIV INFECTION
     Dates: start: 20080509, end: 20080515
  11. TRUVADA [Concomitant]
     Indication: HIV INFECTION
     Dates: start: 20080505, end: 20080519

REACTIONS (4)
  - CHILLS [None]
  - HEPATITIS CHOLESTATIC [None]
  - HYPERTHERMIA [None]
  - MULTI-ORGAN FAILURE [None]
